FAERS Safety Report 9896811 (Version 1)
Quarter: 2014Q1

REPORT INFORMATION
  Report Type: Spontaneous
  Country: US (occurrence: US)
  Receive Date: 20140213
  Receipt Date: 20140213
  Transmission Date: 20141002
  Serious: No
  Sender: FDA-Public Use
  Company Number: US-BRISTOL-MYERS SQUIBB COMPANY-19217579

PATIENT
  Age: 39 Year
  Sex: Female
  Weight: 67.12 kg

DRUGS (2)
  1. ABATACEPT SUBQ INJECTION 125MG/ML [Suspect]
     Indication: RHEUMATOID ARTHRITIS
     Dosage: SECOND INJECTION ON 23-AUG-2013
     Route: 058
     Dates: start: 201308
  2. HUMIRA [Concomitant]

REACTIONS (4)
  - Fatigue [Unknown]
  - Pain [Unknown]
  - Joint swelling [Unknown]
  - Pain in extremity [Unknown]
